FAERS Safety Report 14566982 (Version 1)
Quarter: 2018Q1

REPORT INFORMATION
  Report Type: Spontaneous
  Country: AE (occurrence: AE)
  Receive Date: 20180222
  Receipt Date: 20180222
  Transmission Date: 20180509
  Serious: No
  Sender: FDA-Public Use
  Company Number: None

PATIENT
  Age: 37 Year
  Sex: Male
  Weight: 48 kg

DRUGS (6)
  1. CYCLOSPORINE. [Concomitant]
     Active Substance: CYCLOSPORINE
  2. MYCOPHENOLATE MOFETIL. [Concomitant]
     Active Substance: MYCOPHENOLATE MOFETIL
  3. SORAFIB (SORAFENIB) [Suspect]
     Active Substance: SORAFENIB
     Indication: HEPATOCELLULAR CARCINOMA
     Dosage: QUANTITY:2 TABLET(S);?
     Route: 048
     Dates: start: 20171111
  4. ATONOLOL [Concomitant]
  5. ENTECAVIR MONOHYDRATE [Concomitant]
     Active Substance: ENTECAVIR
  6. PREDNISOLONE. [Concomitant]
     Active Substance: PREDNISOLONE

REACTIONS (10)
  - Hypertension [None]
  - Diarrhoea [None]
  - Fatigue [None]
  - Alopecia [None]
  - Gastric haemorrhage [None]
  - Abdominal pain [None]
  - Decreased appetite [None]
  - Tongue ulceration [None]
  - Palmar-plantar erythrodysaesthesia syndrome [None]
  - Nausea [None]

NARRATIVE: CASE EVENT DATE: 20171211
